FAERS Safety Report 6539344-6 (Version None)
Quarter: 2010Q1

REPORT INFORMATION
  Report Type: 
  Country: None (occurrence: None)
  Receive Date: 20100115
  Receipt Date: 20100104
  Transmission Date: 20100710
  Serious: Yes (Death, Other)
  Sender: FDA-Public Use
  Company Number: US-PFIZER INC-2010001087

PATIENT
  Age: 26 Year
  Sex: Female

DRUGS (2)
  1. ALPROZOLAM [Suspect]
  2. PROMETHAZINE [Suspect]

REACTIONS (2)
  - CARDIAC ARREST [None]
  - COMPLETED SUICIDE [None]
